FAERS Safety Report 9742596 (Version 1)
Quarter: 2013Q4

REPORT INFORMATION
  Report Type: Report from Study
  Country: TR (occurrence: TR)
  Receive Date: 20131210
  Receipt Date: 20131210
  Transmission Date: 20140711
  Serious: Yes (Other)
  Sender: FDA-Public Use
  Company Number: PHHY2013TR141468

PATIENT
  Age: 14 Year
  Sex: Male
  Weight: 50 kg

DRUGS (1)
  1. OMNITROPE [Suspect]
     Indication: GROWTH HORMONE DEFICIENCY
     Dosage: 1.9 MG, UNK
     Route: 058
     Dates: start: 20130424, end: 20130901

REACTIONS (2)
  - Swelling face [Not Recovered/Not Resolved]
  - Local swelling [Not Recovered/Not Resolved]
